FAERS Safety Report 14353303 (Version 7)
Quarter: 2018Q2

REPORT INFORMATION
  Report Type: Spontaneous
  Country: HU (occurrence: HU)
  Receive Date: 20180105
  Receipt Date: 20180507
  Transmission Date: 20180711
  Serious: Yes (Life-Threatening)
  Sender: FDA-Public Use
  Company Number: HU-ROCHE-2049111

PATIENT
  Age: 47 Year
  Sex: Female

DRUGS (11)
  1. PALBOCICLIB [Suspect]
     Active Substance: PALBOCICLIB
     Dosage: 100 UNK, UNK
     Route: 065
     Dates: start: 20171031
  2. FILGRASTIM [Suspect]
     Active Substance: FILGRASTIM
     Indication: PRODUCT USED FOR UNKNOWN INDICATION
     Route: 065
     Dates: start: 20121108, end: 20130221
  3. CAPECITABINE. [Suspect]
     Active Substance: CAPECITABINE
     Indication: PRODUCT USED FOR UNKNOWN INDICATION
     Dosage: UNK
     Route: 065
     Dates: start: 201510, end: 201703
  4. PALBOCICLIB [Suspect]
     Active Substance: PALBOCICLIB
     Indication: PRODUCT USED FOR UNKNOWN INDICATION
     Dosage: 100 MG, UNK
     Route: 065
     Dates: start: 20170926
  5. PALBOCICLIB [Suspect]
     Active Substance: PALBOCICLIB
     Dosage: 11/JUL2017 START DATE
     Route: 065
     Dates: start: 20170711, end: 20170725
  6. GONADORELIN [Suspect]
     Active Substance: GONADORELIN
     Indication: PRODUCT USED FOR UNKNOWN INDICATION
     Dosage: UNK
     Route: 065
     Dates: start: 20170711
  7. PALBOCICLIB [Suspect]
     Active Substance: PALBOCICLIB
     Dosage: 11/JUL2017 START DATE
     Route: 065
     Dates: start: 20170711, end: 20170725
  8. DENOSUMAB [Suspect]
     Active Substance: DENOSUMAB
     Indication: PRODUCT USED FOR UNKNOWN INDICATION
     Dosage: UNK
     Route: 065
  9. FULVESTRANT. [Suspect]
     Active Substance: FULVESTRANT
     Indication: PRODUCT USED FOR UNKNOWN INDICATION
     Dosage: UNK
     Route: 065
     Dates: start: 20170711
  10. LETROZOLE. [Suspect]
     Active Substance: LETROZOLE
     Indication: BREAST CANCER
     Dosage: UNK
     Route: 065
     Dates: start: 201306, end: 201510
  11. LUTEINIZING HORMONE-RELEASING HORMONE [Suspect]
     Active Substance: GONADORELIN
     Indication: PRODUCT USED FOR UNKNOWN INDICATION
     Route: 065
     Dates: start: 20170711

REACTIONS (12)
  - Malignant neoplasm progression [Unknown]
  - Radiation fibrosis [Unknown]
  - Carcinoembryonic antigen increased [Unknown]
  - Uterine disorder [Unknown]
  - Neutropenia [Unknown]
  - Ovarian disorder [Unknown]
  - Uterine enlargement [Unknown]
  - Breast cancer [Unknown]
  - Platelet count decreased [Unknown]
  - Metastases to bone [Unknown]
  - White blood cell count decreased [Unknown]
  - Vaginal haemorrhage [Unknown]

NARRATIVE: CASE EVENT DATE: 2014
